FAERS Safety Report 4478482-9 (Version None)
Quarter: 2004Q4

REPORT INFORMATION
  Report Type: 
  Country: None (occurrence: None)
  Receive Date: 20041019
  Receipt Date: 20040528
  Transmission Date: 20050328
  Serious: Yes (Hospitalization, Other)
  Sender: FDA-Public Use
  Company Number: PHHO2004FR07691

PATIENT
  Age: 33 Year
  Sex: Male

DRUGS (5)
  1. FTY720 VS MYCOPHENOLATE MOFETIL [Suspect]
     Indication: RENAL TRANSPLANT
     Dosage: CODE NOT BROKEN
     Route: 048
     Dates: start: 20030521, end: 20040214
  2. NEORAL [Suspect]
     Indication: RENAL TRANSPLANT
     Dosage: 150 MG / DAY
     Route: 048
     Dates: start: 20030521, end: 20040527
  3. NEORAL [Suspect]
     Dosage: 300 MG / DAY
     Route: 048
     Dates: start: 20040528
  4. DEPAKENE [Concomitant]
     Indication: EPILEPSY
     Dosage: NOT REPORTED
     Dates: start: 20040214
  5. PREDNISOLONE [Concomitant]
     Indication: RENAL TRANSPLANT
     Dosage: NOT REPORTED
     Route: 048

REACTIONS (6)
  - CD4 LYMPHOCYTES DECREASED [None]
  - LYMPHADENECTOMY [None]
  - LYMPHADENITIS [None]
  - LYMPHADENOPATHY [None]
  - LYMPHOPENIA [None]
  - PYREXIA [None]
